FAERS Safety Report 6596891-9 (Version None)
Quarter: 2010Q1

REPORT INFORMATION
  Report Type: 
  Country: None (occurrence: None)
  Receive Date: 20100222
  Receipt Date: 20100222
  Transmission Date: 20100710
  Serious: Yes (Disabling, Other)
  Sender: FDA-Public Use
  Company Number: None

PATIENT
  Sex: Female
  Weight: 61.6892 kg

DRUGS (10)
  1. PLAVIX [Suspect]
     Indication: STENT PLACEMENT
     Dosage: 75 MG 1 DAYLY
     Dates: start: 20091201
  2. PREMARIN [Concomitant]
  3. ATENOLOL [Concomitant]
  4. KLOR-CON [Concomitant]
  5. TRIAMTERENE AND HYDROCHLOROTHIAZIDE [Concomitant]
  6. FOLIC ACID [Concomitant]
  7. CENTRUM CARDIO [Concomitant]
  8. CALCIUM [Concomitant]
  9. FISH OIL OMEGA 3 [Concomitant]
  10. OSTEO BI-FLEX [Concomitant]

REACTIONS (14)
  - ASTHENIA [None]
  - CHEST DISCOMFORT [None]
  - CHEST PAIN [None]
  - CONTUSION [None]
  - DIZZINESS [None]
  - DRY MOUTH [None]
  - FATIGUE [None]
  - GINGIVAL BLEEDING [None]
  - HEADACHE [None]
  - MEMORY IMPAIRMENT [None]
  - TOOTHACHE [None]
  - URINE OUTPUT INCREASED [None]
  - VISION BLURRED [None]
  - VISUAL ACUITY REDUCED [None]
